FAERS Safety Report 4956458-2 (Version None)
Quarter: 2006Q1

REPORT INFORMATION
  Report Type: 
  Country: None (occurrence: None)
  Receive Date: 20060328
  Receipt Date: 20060328
  Transmission Date: 20060701
  Serious: Yes (Other)
  Sender: FDA-Public Use
  Company Number: None

PATIENT
  Age: 84 Year
  Sex: Male
  Weight: 81.6475 kg

DRUGS (2)
  1. LUNESTA [Suspect]
     Indication: INSOMNIA
     Dosage: 2 MG   QHS   PO
     Route: 048
     Dates: start: 20060113
  2. LUNESTA [Suspect]
     Indication: INSOMNIA
     Dosage: 2 MG   QHS   PO
     Route: 048
     Dates: start: 20060313

REACTIONS (2)
  - HOT FLUSH [None]
  - TACHYCARDIA [None]
